FAERS Safety Report 7611711-9 (Version None)
Quarter: 2011Q3

REPORT INFORMATION
  Report Type: 
  Country: None (occurrence: None)
  Receive Date: 20110715
  Receipt Date: 20110712
  Transmission Date: 20111222
  Serious: Yes (Disabling)
  Sender: FDA-Public Use
  Company Number: US-MERCK-1107USA01810

PATIENT
  Sex: Female

DRUGS (2)
  1. BONIVA [Suspect]
     Route: 065
     Dates: start: 20070101, end: 20080101
  2. FOSAMAX [Suspect]
     Route: 048
     Dates: start: 19980101, end: 20070801

REACTIONS (1)
  - FEMUR FRACTURE [None]
